FAERS Safety Report 15338233 (Version 1)
Quarter: 2018Q3

REPORT INFORMATION
  Report Type: Spontaneous
  Country: US (occurrence: US)
  Receive Date: 20180831
  Receipt Date: 20180831
  Transmission Date: 20181010
  Serious: No
  Sender: FDA-Public Use
  Company Number: US-GLAXOSMITHKLINE-US2018GSK154718

PATIENT
  Age: 74 Year
  Sex: Female

DRUGS (1)
  1. NICORETTE [Suspect]
     Active Substance: NICOTINE
     Indication: SMOKING CESSATION THERAPY
     Dosage: 15 DF, 1D
     Route: 048
     Dates: start: 201701

REACTIONS (3)
  - Overdose [Unknown]
  - Blood potassium increased [Unknown]
  - Inappropriate schedule of drug administration [Unknown]
